FAERS Safety Report 21557768 (Version 1)
Quarter: 2022Q4

REPORT INFORMATION
  Report Type: Spontaneous
  Country: US (occurrence: US)
  Receive Date: 20221106
  Receipt Date: 20221106
  Transmission Date: 20230113
  Serious: Yes (Other)
  Sender: FDA-Public Use
  Company Number: US-BRISTOL-MYERS SQUIBB COMPANY-2022-132505

PATIENT
  Age: 51 Year
  Sex: Female

DRUGS (1)
  1. REVLIMID [Suspect]
     Active Substance: LENALIDOMIDE
     Indication: Plasma cell myeloma
     Dosage: FREQUENCY: TAKE 1 CAPSULE DAILY FOR 14 DAYS ON AND 7 DAYS OFF
     Route: 048
     Dates: start: 202204

REACTIONS (4)
  - Fatigue [Unknown]
  - Diarrhoea [Unknown]
  - Neuropathy peripheral [Unknown]
  - Off label use [Unknown]
